FAERS Safety Report 18704344 (Version 1)
Quarter: 2021Q1

REPORT INFORMATION
  Report Type: Report from Study
  Country: US (occurrence: US)
  Receive Date: 20210106
  Receipt Date: 20210106
  Transmission Date: 20210419
  Serious: Yes (Life-Threatening, Other)
  Sender: FDA-Public Use
  Company Number: US-BRISTOL-MYERS SQUIBB COMPANY-BMS-2020-111841

PATIENT
  Age: 69 Year
  Sex: Female
  Weight: 94.3 kg

DRUGS (5)
  1. NIRAPARIB [Suspect]
     Active Substance: NIRAPARIB
     Indication: MALIGNANT PERITONEAL NEOPLASM
     Dosage: 200 MILLIGRAM, QD
     Route: 048
     Dates: start: 20190415, end: 20190924
  2. NIRAPARIB [Suspect]
     Active Substance: NIRAPARIB
     Dosage: 200 MILLIGRAM, QD
     Route: 048
     Dates: start: 20190925
  3. NIRAPARIB [Suspect]
     Active Substance: NIRAPARIB
     Dosage: 100 MILLIGRAM, QD
     Route: 048
     Dates: start: 20191207
  4. APIXABAN [Suspect]
     Active Substance: APIXABAN
     Indication: PRODUCT USED FOR UNKNOWN INDICATION
     Dosage: UNK
     Route: 065
  5. CRESTOR [Suspect]
     Active Substance: ROSUVASTATIN CALCIUM
     Indication: PRODUCT USED FOR UNKNOWN INDICATION
     Dosage: UNK
     Route: 065

REACTIONS (29)
  - Pain in extremity [Unknown]
  - Fatigue [Recovered/Resolved]
  - Photophobia [Not Recovered/Not Resolved]
  - Contusion [Unknown]
  - Limb mass [Unknown]
  - Vomiting [Unknown]
  - Constipation [Unknown]
  - Dizziness [Recovered/Resolved]
  - Diarrhoea [Recovered/Resolved]
  - Skin discolouration [Recovering/Resolving]
  - Haemoglobin decreased [Recovered/Resolved]
  - Abdominal pain upper [Recovered/Resolved]
  - Dehydration [Unknown]
  - Headache [Recovered/Resolved]
  - Pruritus [Unknown]
  - Nausea [Not Recovered/Not Resolved]
  - Insomnia [Recovered/Resolved]
  - Hyperglycaemia [Not Recovered/Not Resolved]
  - Sunburn [Unknown]
  - Blood cholesterol increased [Not Recovered/Not Resolved]
  - Platelet count decreased [Recovered/Resolved]
  - Skin odour abnormal [Recovered/Resolved]
  - Dysgeusia [Not Recovered/Not Resolved]
  - Calcinosis [Unknown]
  - Thrombosis [Unknown]
  - Arthralgia [Unknown]
  - Depression [Unknown]
  - Glucose tolerance impaired [Unknown]
  - Low density lipoprotein increased [Unknown]

NARRATIVE: CASE EVENT DATE: 20190722
